FAERS Safety Report 7829768-9 (Version None)
Quarter: 2011Q4

REPORT INFORMATION
  Report Type: 
  Country: None (occurrence: None)
  Receive Date: 20111020
  Receipt Date: 20111020
  Transmission Date: 20120403
  Serious: Yes (Disabling, Other)
  Sender: FDA-Public Use
  Company Number: None

PATIENT
  Age: 78 Year
  Sex: Female
  Weight: 70.3075 kg

DRUGS (1)
  1. PROLIA [Suspect]
     Indication: OSTEOPOROSIS
     Dosage: 1 INJECTION EVERY 6 MOS
     Dates: start: 20110621

REACTIONS (5)
  - HYPOACUSIS [None]
  - EAR PAIN [None]
  - HEADACHE [None]
  - VERTIGO [None]
  - ABDOMINAL PAIN [None]
